FAERS Safety Report 4824342-0 (Version None)
Quarter: 2005Q4

REPORT INFORMATION
  Report Type: 
  Country: None (occurrence: None)
  Receive Date: 20051109
  Receipt Date: 20050624
  Transmission Date: 20060501
  Serious: Yes (Other)
  Sender: FDA-Public Use
  Company Number: PHFR2005GB02287

PATIENT
  Age: 40 Year
  Sex: Female

DRUGS (2)
  1. GLEEVEC [Suspect]
     Indication: CHRONIC MYELOID LEUKAEMIA
     Dosage: 300MG/DAY
     Route: 048
     Dates: start: 20040801
  2. FOLIC ACID [Concomitant]
     Indication: PREGNANCY
     Dosage: 400UG/DAY
     Route: 048
     Dates: start: 20050501

REACTIONS (2)
  - ABORTION SPONTANEOUS [None]
  - DRUG EXPOSURE DURING PREGNANCY [None]
